FAERS Safety Report 24211369 (Version 2)
Quarter: 2024Q3

REPORT INFORMATION
  Report Type: Spontaneous
  Country: CN (occurrence: CN)
  Receive Date: 20240814
  Receipt Date: 20240820
  Transmission Date: 20241016
  Serious: Yes (Hospitalization, Other)
  Sender: PFIZER
  Company Number: CN-PFIZER INC-202400234409

PATIENT
  Age: 65 Year
  Sex: Male

DRUGS (2)
  1. LORBRENA [Suspect]
     Active Substance: LORLATINIB
     Indication: Non-small cell lung cancer
     Dosage: 1 DF, 1X/DAY
     Route: 048
     Dates: start: 202407, end: 202407
  2. LORBRENA [Suspect]
     Active Substance: LORLATINIB
     Dosage: 1 DF, 1X/DAY
     Route: 048
     Dates: start: 2024, end: 2024

REACTIONS (4)
  - Haemoptysis [Recovering/Resolving]
  - Pulmonary cavitation [Unknown]
  - Tumour rupture [Unknown]
  - Therapeutic response unexpected [Unknown]

NARRATIVE: CASE EVENT DATE: 20240701
